FAERS Safety Report 11670872 (Version 3)
Quarter: 2015Q4

REPORT INFORMATION
  Report Type: Not Available
  Country: SE (occurrence: SE)
  Receive Date: 20151028
  Receipt Date: 20151124
  Transmission Date: 20160304
  Serious: Yes (Hospitalization)
  Sender: FDA-Public Use
  Company Number: SE-BEH-2015054877

PATIENT
  Age: 62 Year
  Sex: Female

DRUGS (24)
  1. EMCONCOR CHF [Concomitant]
     Indication: PRODUCT USED FOR UNKNOWN INDICATION
  2. PRIVIGEN [Suspect]
     Active Substance: HUMAN IMMUNOGLOBULIN G
     Indication: POLYMYOSITIS
     Dosage: BATCH NO.: REQUESTED, 5TH DOSE ON 11-SEP-2015
     Dates: start: 20150701, end: 20150912
  3. WARAN [Concomitant]
     Active Substance: WARFARIN SODIUM
     Indication: PRODUCT USED FOR UNKNOWN INDICATION
  4. NORMORIX MITE [Concomitant]
     Active Substance: AMILORIDE HYDROCHLORIDE\HYDROCHLOROTHIAZIDE
     Indication: PRODUCT USED FOR UNKNOWN INDICATION
  5. KALEORID [Concomitant]
     Active Substance: POTASSIUM CHLORIDE
     Indication: PRODUCT USED FOR UNKNOWN INDICATION
     Dosage: DEPOT TABLET
  6. NOVOMIX [Concomitant]
     Active Substance: INSULIN ASPART
     Indication: PRODUCT USED FOR UNKNOWN INDICATION
     Dosage: PREFILLED SYRINGE
  7. EZETROL [Concomitant]
     Active Substance: EZETIMIBE
     Indication: PRODUCT USED FOR UNKNOWN INDICATION
  8. VENTOLINE [Concomitant]
     Active Substance: ALBUTEROL
     Indication: PRODUCT USED FOR UNKNOWN INDICATION
  9. OCULAC [Concomitant]
     Indication: PRODUCT USED FOR UNKNOWN INDICATION
     Route: 047
  10. OMEPRAZOLE. [Concomitant]
     Active Substance: OMEPRAZOLE
     Indication: PRODUCT USED FOR UNKNOWN INDICATION
  11. LIPITOR [Concomitant]
     Active Substance: ATORVASTATIN CALCIUM
     Indication: PRODUCT USED FOR UNKNOWN INDICATION
  12. IMOVANE [Concomitant]
     Active Substance: ZOPICLONE
     Indication: SLEEP DISORDER
  13. DETRUSITOL SR [Concomitant]
     Active Substance: TOLTERODINE TARTRATE
     Indication: PRODUCT USED FOR UNKNOWN INDICATION
  14. HUMALOG [Concomitant]
     Active Substance: INSULIN LISPRO
     Indication: PRODUCT USED FOR UNKNOWN INDICATION
  15. SOBRIL [Concomitant]
     Active Substance: OXAZEPAM
     Indication: ANXIETY
  16. ATROVENT [Concomitant]
     Active Substance: IPRATROPIUM BROMIDE
     Indication: PRODUCT USED FOR UNKNOWN INDICATION
  17. NOVALUCOL [Concomitant]
     Indication: PRODUCT USED FOR UNKNOWN INDICATION
  18. ONDANSETRON 2CARE4 MOT [Concomitant]
     Indication: NAUSEA
  19. PREDNISOLONE. [Concomitant]
     Active Substance: PREDNISOLONE
     Indication: PRODUCT USED FOR UNKNOWN INDICATION
  20. CALCICHEW-D3 [Concomitant]
     Active Substance: CALCIUM\CHOLECALCIFEROL
     Indication: OSTEOPOROSIS
  21. ACETYLCYSTEINE. [Concomitant]
     Active Substance: ACETYLCYSTEINE
     Indication: PRODUCT USED FOR UNKNOWN INDICATION
  22. SERETIDE DISKUS FORTE [Concomitant]
     Indication: PRODUCT USED FOR UNKNOWN INDICATION
     Dosage: INHALATION POWDER, PRE-DISPENSED (DIVIDED DOSES)
     Route: 055
  23. ALVEDON [Concomitant]
     Active Substance: ACETAMINOPHEN
     Indication: PRODUCT USED FOR UNKNOWN INDICATION
  24. DETRUSITOL SR [Concomitant]
     Active Substance: TOLTERODINE TARTRATE

REACTIONS (10)
  - Cardiac failure congestive [Unknown]
  - Wheezing [Recovering/Resolving]
  - Myocardial infarction [Unknown]
  - Dyspnoea [Recovering/Resolving]
  - C-reactive protein increased [Recovered/Resolved]
  - Troponin increased [Unknown]
  - Cardiac failure [Unknown]
  - Chills [Recovering/Resolving]
  - Dyspnoea [Unknown]
  - Chest pain [Unknown]

NARRATIVE: CASE EVENT DATE: 20150701
